FAERS Safety Report 8889254 (Version 2)
Quarter: 2013Q1

REPORT INFORMATION
  Report Type: Spontaneous
  Country: US (occurrence: US)
  Receive Date: 20121106
  Receipt Date: 20130124
  Transmission Date: 20140127
  Serious: Yes (Death, Hospitalization)
  Sender: FDA-Public Use
  Company Number: US-JNJFOC-20121016180

PATIENT
  Age: 72 None
  Sex: Male
  Weight: 83.01 kg

DRUGS (3)
  1. REMICADE [Suspect]
     Indication: CROHN^S DISEASE
     Route: 042
  2. AZATHIOPRINE [Concomitant]
     Route: 065
     Dates: start: 201103
  3. PREDNISONE [Concomitant]
     Indication: IRRITABLE BOWEL SYNDROME
     Dosage: STATUS OF DRUG: THE PATIENT WAS ON AN OFF ON UNSPECIFIED DATES
     Route: 065
     Dates: start: 1974

REACTIONS (10)
  - Haemorrhage [Fatal]
  - Adrenal mass [Unknown]
  - Sarcoma metastatic [Unknown]
  - Renal failure acute [Unknown]
  - Confusional state [Unknown]
  - Dysphagia [Unknown]
  - Pancreatic enlargement [Unknown]
  - Splenomegaly [Unknown]
  - Small intestinal obstruction [Unknown]
  - Metastatic neoplasm [Unknown]
